FAERS Safety Report 5321223-3 (Version None)
Quarter: 2007Q1

REPORT INFORMATION
  Report Type: 
  Country: None (occurrence: None)
  Receive Date: 20070215
  Receipt Date: 20061218
  Transmission Date: 20070707
  Serious: No
  Sender: FDA-Public Use
  Company Number: 200616953BWH

PATIENT
  Sex: Male

DRUGS (1)
  1. NEXAVAR [Suspect]
     Indication: DRUG USE FOR UNKNOWN INDICATION
     Dosage: ORAL
     Route: 048
     Dates: start: 20050901

REACTIONS (4)
  - ANOREXIA [None]
  - BLOOD CALCIUM DECREASED [None]
  - DIARRHOEA [None]
  - WEIGHT DECREASED [None]
